FAERS Safety Report 10253746 (Version 2)
Quarter: 2015Q1

REPORT INFORMATION
  Report Type: Spontaneous
  Country: FR (occurrence: FR)
  Receive Date: 20140623
  Receipt Date: 20150119
  Transmission Date: 20150720
  Serious: Yes (Other)
  Sender: FDA-Public Use
  Company Number: FR-GILEAD-2014-0105733

PATIENT
  Age: 67 Year
  Sex: Female

DRUGS (3)
  1. VISTIDE [Suspect]
     Active Substance: CIDOFOVIR
     Dosage: 2 UNK, UNK
     Route: 026
     Dates: start: 2010, end: 2010
  2. VISTIDE [Suspect]
     Active Substance: CIDOFOVIR
     Indication: LARYNGEAL PAPILLOMA
     Dosage: 4 MG/KG, Q2WK
     Route: 042
  3. VISTIDE [Suspect]
     Active Substance: CIDOFOVIR
     Dosage: 2 ML, UNK
     Route: 026
     Dates: start: 2004, end: 2005

REACTIONS (2)
  - Pupil fixed [Unknown]
  - Hypotony of eye [Unknown]
